FAERS Safety Report 4435682-1 (Version None)
Quarter: 2004Q3

REPORT INFORMATION
  Report Type: 
  Country: None (occurrence: None)
  Receive Date: 20040726
  Receipt Date: 20040507
  Transmission Date: 20050211
  Serious: Yes (Other)
  Sender: FDA-Public Use
  Company Number: US_010463107

PATIENT
  Age: 76 Year
  Sex: Female
  Weight: 55 kg

DRUGS (3)
  1. EVISTA [Suspect]
     Indication: OSTEOPOROSIS
     Dosage: 60 MG/1 DAY
     Dates: start: 20001001
  2. FORTEO [Suspect]
     Dates: start: 20040101, end: 20040101
  3. CALCIUM AND VITAMIN D [Concomitant]

REACTIONS (4)
  - MACULAR DEGENERATION [None]
  - MUSCLE CRAMP [None]
  - SENSATION OF HEAVINESS [None]
  - VISION BLURRED [None]
